FAERS Safety Report 9475272 (Version 2)
Quarter: 2014Q1

REPORT INFORMATION
  Report Type: Report from Study
  Country: DE (occurrence: DE)
  Receive Date: 20130826
  Receipt Date: 20140117
  Transmission Date: 20141002
  Serious: Yes (Hospitalization)
  Sender: FDA-Public Use
  Company Number: DE-ROCHE-1265807

PATIENT
  Age: 80 Year
  Sex: Female
  Weight: 60 kg

DRUGS (3)
  1. BEVACIZUMAB [Suspect]
     Indication: MALIGNANT PERITONEAL NEOPLASM
     Dosage: LAST ADMINISTRATION BEFORE ONSET OF SAE WAS ON 07/AUG/2013
     Route: 042
     Dates: start: 20130515, end: 20130827
  2. CARBOPLATIN [Suspect]
     Indication: MALIGNANT PERITONEAL NEOPLASM
     Dosage: LAST DOSE PRIOR TO EVENT: 07/AUG/2013
     Route: 042
     Dates: start: 20130424, end: 20130827
  3. PACLITAXEL [Suspect]
     Indication: MALIGNANT PERITONEAL NEOPLASM
     Dosage: LAST DOSE PRIOR TO EVENT:07/AUG/2013
     Route: 042
     Dates: start: 20130424, end: 20130827

REACTIONS (1)
  - Pelvic fracture [Recovered/Resolved]
